FAERS Safety Report 24867671 (Version 1)
Quarter: 2025Q1

REPORT INFORMATION
  Report Type: Report from Study
  Country: US (occurrence: US)
  Receive Date: 20250121
  Receipt Date: 20250121
  Transmission Date: 20250408
  Serious: Yes (Hospitalization)
  Sender: MYLAN
  Company Number: US-MYLANLABS-2025M1003239

PATIENT

DRUGS (2)
  1. ABACAVIR [Suspect]
     Active Substance: ABACAVIR
     Indication: Antiviral treatment
     Route: 065
  2. TENOFOVIR [Suspect]
     Active Substance: TENOFOVIR
     Indication: Antiviral treatment
     Route: 065

REACTIONS (2)
  - Acute kidney injury [Unknown]
  - Renal tubular necrosis [Unknown]
